FAERS Safety Report 4293067-5 (Version None)
Quarter: 2004Q1

REPORT INFORMATION
  Report Type: 
  Country: None (occurrence: None)
  Receive Date: 20040210
  Receipt Date: 20040128
  Transmission Date: 20041129
  Serious: Yes (Other)
  Sender: FDA-Public Use
  Company Number: US-JNJFOC-20030902174

PATIENT
  Age: 43 Year
  Sex: Female
  Weight: 64.4108 kg

DRUGS (12)
  1. REMICADE [Suspect]
     Dosage: 400 MG, 1 IN 1 DAY, INTRAVEOUS
     Route: 042
     Dates: start: 20030806
  2. REMICADE [Suspect]
     Dosage: 400 MG, 1 IN 1 DAY, INTRAVEOUS
     Route: 042
     Dates: start: 20030820
  3. REMICADE [Suspect]
     Dosage: 400 MG, 1 IN 1 DAY, INTRAVEOUS
     Route: 042
     Dates: start: 20030917
  4. REMICADE [Suspect]
     Dosage: 400 MG, 1 IN 1 DAY, INTRAVEOUS
     Route: 042
     Dates: start: 20031113
  5. ENTOCORT (BUDENSONIDE) [Concomitant]
  6. ASACOL [Concomitant]
  7. IMURAN [Concomitant]
  8. MULTIVITAMIN [Concomitant]
  9. REMICADE [Suspect]
  10. REMICADE [Suspect]
  11. REMICADE [Suspect]
  12. REMICADE [Suspect]

REACTIONS (7)
  - ABDOMINAL DISTENSION [None]
  - ANTINUCLEAR ANTIBODY POSITIVE [None]
  - DIARRHOEA HAEMORRHAGIC [None]
  - DIZZINESS [None]
  - INFUSION RELATED REACTION [None]
  - INFUSION SITE PAIN [None]
  - LUPUS-LIKE SYNDROME [None]
